FAERS Safety Report 10345780 (Version 1)
Quarter: 2014Q3

REPORT INFORMATION
  Report Type: Spontaneous
  Country: FR (occurrence: None)
  Receive Date: 20140723
  Receipt Date: 20140723
  Transmission Date: 20150326
  Serious: Yes (Death)
  Sender: FDA-Public Use
  Company Number: 7305863

PATIENT
  Age: 77 Year
  Sex: Female

DRUGS (3)
  1. PREVISCAN [Suspect]
     Active Substance: FLUINDIONE
     Indication: ARRHYTHMIA
     Dosage: 0.5 OR 0.75 TABLET PER DAY
  2. STAGID [Suspect]
     Active Substance: METFORMIN PAMOATE
     Indication: ARRHYTHMIA
  3. STAGID [Suspect]
     Active Substance: METFORMIN PAMOATE
     Indication: ATRIAL FIBRILLATION

REACTIONS (3)
  - Hydrocephalus [None]
  - International normalised ratio increased [None]
  - Cerebral haemorrhage [None]
